FAERS Safety Report 9877886 (Version 1)
Quarter: 2014Q1

REPORT INFORMATION
  Report Type: Spontaneous
  Country: US (occurrence: US)
  Receive Date: 20140206
  Receipt Date: 20140206
  Transmission Date: 20141002
  Serious: No
  Sender: FDA-Public Use
  Company Number: US-BAYER-2014-012543

PATIENT
  Age: 51 Year
  Sex: Female

DRUGS (2)
  1. ANGELIQ [Suspect]
     Indication: HOT FLUSH
     Dosage: 0.25 UNK, UNK
     Route: 048
     Dates: start: 201311
  2. ANGELIQ [Suspect]
     Indication: MENOPAUSE

REACTIONS (3)
  - Weight increased [Not Recovered/Not Resolved]
  - Inappropriate schedule of drug administration [None]
  - Hot flush [Not Recovered/Not Resolved]
